FAERS Safety Report 4770697-5 (Version None)
Quarter: 2005Q3

REPORT INFORMATION
  Report Type: 
  Country: None (occurrence: None)
  Receive Date: 20050914
  Receipt Date: 20050914
  Transmission Date: 20060218
  Serious: Yes (Death, Hospitalization)
  Sender: FDA-Public Use
  Company Number: None

PATIENT
  Age: 47 Year
  Sex: Male
  Weight: 89 kg

DRUGS (11)
  1. WARFARIN 5MG BRISTOL MYERS SQUIBB [Suspect]
     Indication: ATRIAL FIBRILLATION
     Dosage: 12.5MG/10MG QFRI/REST OF WEEK PO
     Route: 048
     Dates: start: 20040609, end: 20050803
  2. CALCIUM ACETATE [Concomitant]
  3. METOPROLOL [Concomitant]
  4. OMEPRAZOLE [Concomitant]
  5. NEPHROVITE TABS [Concomitant]
  6. ATORVASTATIN [Concomitant]
  7. FELODIPINE [Concomitant]
  8. LISINOPRIL [Concomitant]
  9. ALLOPURINOL [Concomitant]
  10. EZETIMIBE [Concomitant]
  11. SILDENAFIL [Concomitant]

REACTIONS (2)
  - HAEMORRHAGIC STROKE [None]
  - INTERNATIONAL NORMALISED RATIO INCREASED [None]
